FAERS Safety Report 15890724 (Version 2)
Quarter: 2019Q2

REPORT INFORMATION
  Report Type: Report from Study
  Country: US (occurrence: US)
  Receive Date: 20190130
  Receipt Date: 20190426
  Transmission Date: 20190711
  Serious: No
  Sender: FDA-Public Use
  Company Number: US-SA-2019SA022229

PATIENT
  Age: 64 Year
  Sex: Female

DRUGS (1)
  1. INSULIN GLARGINE [Suspect]
     Active Substance: INSULIN GLARGINE
     Indication: TYPE 2 DIABETES MELLITUS
     Dosage: 35 TO 40 UNITS, QD
     Route: 065
     Dates: start: 201807

REACTIONS (8)
  - Device operational issue [Unknown]
  - Speech disorder [Unknown]
  - Product use issue [Unknown]
  - Product dose omission [Unknown]
  - Oropharyngeal pain [Unknown]
  - Product storage error [Unknown]
  - Glycosylated haemoglobin increased [Unknown]
  - Product packaging issue [Unknown]
